FAERS Safety Report 8826167 (Version 2)
Quarter: 2012Q4

REPORT INFORMATION
  Report Type: 
  Country: IN (occurrence: IN)
  Receive Date: 20121005
  Receipt Date: 20121023
  Transmission Date: 20130627
  Serious: Yes (Other)
  Sender: FDA-Public Use
  Company Number: IN-ROCHE-1139753

PATIENT

DRUGS (2)
  1. BEVACIZUMAB [Suspect]
     Indication: PROPHYLAXIS
     Dosage: 1.25 mg/0.05 mL
     Route: 057
  2. BEVACIZUMAB [Suspect]
     Indication: OFF LABEL USE

REACTIONS (1)
  - Conjunctival ulcer [Unknown]
